FAERS Safety Report 21572749 (Version 1)
Quarter: 2022Q4

REPORT INFORMATION
  Report Type: Report from Study
  Country: US (occurrence: US)
  Receive Date: 20221109
  Receipt Date: 20221109
  Transmission Date: 20230113
  Serious: No
  Sender: FDA-Public Use
  Company Number: US-ABBVIE-4192706

PATIENT
  Sex: Male

DRUGS (1)
  1. VENCLEXTA [Suspect]
     Active Substance: VENETOCLAX
     Indication: Acute myeloid leukaemia
     Dosage: TAKE 1 TAB DAILY, ON DAYS 1 TO 10 WITH 8 OUNCES OF WATER WITHIN 1/2 HOUR AFTER COMPLETION OF MEAL...
     Route: 048

REACTIONS (2)
  - Epistaxis [Not Recovered/Not Resolved]
  - Platelet count decreased [Not Recovered/Not Resolved]
